FAERS Safety Report 24445500 (Version 1)
Quarter: 2024Q4

REPORT INFORMATION
  Report Type: Spontaneous
  Country: US (occurrence: US)
  Receive Date: 20241016
  Receipt Date: 20241016
  Transmission Date: 20250114
  Serious: No
  Sender: Unknown Manufacturer
  Company Number: US-SHIELD THERAPEUTICS-US-STX-23-00109

PATIENT
  Age: 77 Year
  Sex: Female

DRUGS (1)
  1. ACCRUFER [Suspect]
     Active Substance: FERRIC MALTOL
     Indication: Product used for unknown indication
     Dosage: 1 CAPSULE (30 MG TOTAL) BY MOUTH IN THE MORNING AND 1 CAPSULE (30 MG TOTAL) BEFORE BEDTIME
     Route: 048
     Dates: start: 20230905, end: 20231005

REACTIONS (1)
  - Diarrhoea [Unknown]
